FAERS Safety Report 21486683 (Version 1)
Quarter: 2022Q4

REPORT INFORMATION
  Report Type: Spontaneous
  Country: CA (occurrence: CA)
  Receive Date: 20221020
  Receipt Date: 20221020
  Transmission Date: 20230113
  Serious: Yes (Hospitalization)
  Sender: FDA-Public Use
  Company Number: CA-MYLANLABS-2022M1116408

PATIENT
  Age: 14 Year
  Sex: Male

DRUGS (4)
  1. EPINEPHRINE [Suspect]
     Active Substance: EPINEPHRINE
     Indication: Epistaxis
     Dosage: UNK
     Route: 061
  2. OXYMETAZOLINE [Suspect]
     Active Substance: OXYMETAZOLINE
     Indication: Epistaxis
     Dosage: UNK
     Route: 045
  3. XYLOCAINE [Suspect]
     Active Substance: LIDOCAINE HYDROCHLORIDE
     Indication: Epistaxis
     Dosage: BILATERAL NASAL PACKING SOAKED WITH 4% LIDOCAINE.
     Route: 045
  4. GELATIN [Suspect]
     Active Substance: GELATIN
     Indication: Epistaxis
     Dosage: UNK; A DISSOLVABLE GELATIN NASAL PACK.
     Route: 045

REACTIONS (2)
  - Drug ineffective for unapproved indication [Unknown]
  - Off label use [Unknown]
